FAERS Safety Report 4343127-5 (Version None)
Quarter: 2004Q2

REPORT INFORMATION
  Report Type: 
  Country: None (occurrence: None)
  Receive Date: 20040421
  Receipt Date: 20040408
  Transmission Date: 20050107
  Serious: Yes (Life-Threatening, Hospitalization, Other)
  Sender: FDA-Public Use
  Company Number: RO-GLAXOSMITHKLINE-B0329549A

PATIENT
  Age: 15 Year
  Sex: Male
  Weight: 34 kg

DRUGS (3)
  1. RETROVIR [Suspect]
     Indication: HIV INFECTION
     Dosage: 200MG TWICE PER DAY
     Route: 048
     Dates: start: 20030515, end: 20040325
  2. EPIVIR [Concomitant]
     Dosage: 13ML TWICE PER DAY
     Route: 048
     Dates: start: 20030515
  3. CRIXIVAN [Concomitant]
     Dosage: 400MG THREE TIMES PER DAY
     Route: 048
     Dates: start: 20030515

REACTIONS (7)
  - ABDOMINAL PAIN [None]
  - ANAEMIA [None]
  - ANOREXIA [None]
  - HEPATOMEGALY [None]
  - PALLOR [None]
  - TACHYCARDIA [None]
  - WEIGHT DECREASED [None]
